FAERS Safety Report 9147414 (Version 3)
Quarter: 2013Q2

REPORT INFORMATION
  Report Type: Report from Study
  Country: CN (occurrence: CN)
  Receive Date: 20130307
  Receipt Date: 20130425
  Transmission Date: 20140414
  Serious: Yes (Hospitalization)
  Sender: FDA-Public Use
  Company Number: CN-GLAXOSMITHKLINE-B0872229A

PATIENT
  Age: 32 Year
  Sex: Male
  Weight: 68 kg

DRUGS (3)
  1. LAMOTRIGINE [Suspect]
     Indication: BIPOLAR DISORDER
     Dosage: 200MG PER DAY
     Route: 048
     Dates: start: 20121130, end: 20130113
  2. PLACEBO [Suspect]
     Indication: BIPOLAR DISORDER
     Route: 048
     Dates: start: 20130114, end: 20130221
  3. SCOPOLAMINE [Concomitant]
     Dosage: .3MG TWICE PER DAY
     Route: 048
     Dates: start: 20130223, end: 20130228

REACTIONS (1)
  - Bipolar I disorder [Recovered/Resolved]
